FAERS Safety Report 8315534-7 (Version None)
Quarter: 2012Q2

REPORT INFORMATION
  Report Type: 
  Country: None (occurrence: None)
  Receive Date: 20120426
  Receipt Date: 20120424
  Transmission Date: 20120825
  Serious: Yes (Other)
  Sender: FDA-Public Use
  Company Number: JP-PFIZER INC-2012100404

PATIENT
  Age: 87 Year
  Sex: Male

DRUGS (2)
  1. LYRICA [Suspect]
     Indication: POST HERPETIC NEURALGIA
     Dosage: 75 MG, 2X/DAY
     Route: 048
  2. VESICARE [Concomitant]
     Dosage: UNK

REACTIONS (2)
  - URINARY RETENTION [None]
  - DEMENTIA [None]
